FAERS Safety Report 5444300-5 (Version None)
Quarter: 2007Q3

REPORT INFORMATION
  Report Type: 
  Country: None (occurrence: None)
  Receive Date: 20070904
  Receipt Date: 20070904
  Transmission Date: 20080115
  Serious: No
  Sender: FDA-Public Use
  Company Number: None

PATIENT
  Sex: Female
  Weight: 57.6068 kg

DRUGS (1)
  1. ZOCOR [Suspect]
     Indication: BLOOD CHOLESTEROL INCREASED
     Dosage: ONE TABLET  DAILY
     Dates: start: 20070717, end: 20070720

REACTIONS (4)
  - BALANCE DISORDER [None]
  - FATIGUE [None]
  - MYALGIA [None]
  - PARAESTHESIA [None]
